FAERS Safety Report 5502878-7 (Version None)
Quarter: 2007Q4

REPORT INFORMATION
  Report Type: 
  Country: None (occurrence: None)
  Receive Date: 20071031
  Receipt Date: 20071030
  Transmission Date: 20080405
  Serious: Yes (Death)
  Sender: FDA-Public Use
  Company Number: A0689947A

PATIENT
  Age: 63 Year
  Sex: Female

DRUGS (3)
  1. COMMIT [Suspect]
     Indication: MULTIPLE SCLEROSIS
     Route: 002
  2. HOT WATER [Suspect]
     Indication: MULTIPLE SCLEROSIS
     Route: 050
  3. COLLOIDAL SILVER [Suspect]
     Indication: MULTIPLE SCLEROSIS

REACTIONS (2)
  - DROWNING [None]
  - MULTIPLE SCLEROSIS [None]
